FAERS Safety Report 4818433-8 (Version None)
Quarter: 2005Q4

REPORT INFORMATION
  Report Type: 
  Country: None (occurrence: None)
  Receive Date: 20051102
  Receipt Date: 20050520
  Transmission Date: 20060501
  Serious: Yes (Other)
  Sender: FDA-Public Use
  Company Number: PHEH2005US05801

PATIENT
  Age: 42 Year
  Sex: Female

DRUGS (13)
  1. ZOMETA [Suspect]
     Indication: BREAST CANCER METASTATIC
     Dosage: 4MG QMO
     Route: 042
     Dates: start: 20020327, end: 20050101
  2. COUMADIN [Concomitant]
     Dosage: 1 MG, UNK
  3. CELEXA [Concomitant]
     Dosage: 20 MG, UNK
  4. LEVOTHYROXINE [Concomitant]
     Indication: HYPOTHYROIDISM
     Dosage: 175 UG, UNK
     Dates: start: 20020601
  5. PREVACID [Concomitant]
     Indication: GASTROOESOPHAGEAL REFLUX DISEASE
     Dosage: 30 MG, QD
  6. AMBIEN [Concomitant]
  7. ZANAFLEX [Concomitant]
  8. TRILISATE [Concomitant]
  9. ZYRTEC [Concomitant]
  10. COMBIVENT                               /GFR/ [Concomitant]
  11. FEMARA [Concomitant]
     Dates: end: 20050201
  12. FASLODEX [Concomitant]
     Dosage: UNK, QMO
     Dates: start: 20050201
  13. CYTOMEL [Concomitant]
     Indication: HYPOTHYROIDISM

REACTIONS (37)
  - ACTINOMYCOSIS [None]
  - ARTHRALGIA [None]
  - BACK PAIN [None]
  - BONE SCAN ABNORMAL [None]
  - BRONCHITIS [None]
  - CARDIOMYOPATHY [None]
  - COUGH [None]
  - DISCOMFORT [None]
  - DISTURBANCE IN ATTENTION [None]
  - DRY SKIN [None]
  - EJECTION FRACTION DECREASED [None]
  - EPIDURAL ANAESTHESIA [None]
  - FATIGUE [None]
  - GINGIVITIS [None]
  - HEADACHE [None]
  - HOT FLUSH [None]
  - HYPERLIPIDAEMIA [None]
  - HYPOAESTHESIA [None]
  - HYPOREFLEXIA [None]
  - HYPOTHYROIDISM [None]
  - HYSTERECTOMY [None]
  - INFLUENZA LIKE ILLNESS [None]
  - INTERVERTEBRAL DISC DISORDER [None]
  - INTERVERTEBRAL DISC PROTRUSION [None]
  - MALIGNANT NEOPLASM PROGRESSION [None]
  - METASTASES TO SPINE [None]
  - MUSCULAR WEAKNESS [None]
  - MUSCULOSKELETAL DISCOMFORT [None]
  - MYALGIA [None]
  - OSTEOARTHRITIS [None]
  - OSTEONECROSIS [None]
  - OSTEOPENIA [None]
  - PAIN IN EXTREMITY [None]
  - PAIN IN JAW [None]
  - PARAESTHESIA [None]
  - STOMATITIS [None]
  - TOOTH INFECTION [None]
